FAERS Safety Report 14279841 (Version 1)
Quarter: 2017Q4

REPORT INFORMATION
  Report Type: Spontaneous
  Country: US (occurrence: US)
  Receive Date: 20171213
  Receipt Date: 20171213
  Transmission Date: 20180321
  Serious: Yes (Hospitalization, Other)
  Sender: FDA-Public Use
  Company Number: US-ROCHE-2036638

PATIENT
  Age: 25 Year
  Sex: Female

DRUGS (12)
  1. BENADRYL [Suspect]
     Active Substance: DIPHENHYDRAMINE HYDROCHLORIDE
     Indication: VOMITING
     Route: 065
  2. ATIVAN [Suspect]
     Active Substance: LORAZEPAM
     Indication: PRODUCT USED FOR UNKNOWN INDICATION
     Route: 065
  3. ABILIFY [Suspect]
     Active Substance: ARIPIPRAZOLE
     Indication: BIPOLAR DISORDER
     Dosage: STARTED PRIOR TO CONCEPTION TILL 5 WEEKS OF GESTATION
     Route: 065
  4. ABILIFY [Suspect]
     Active Substance: ARIPIPRAZOLE
     Dosage: FROM 15 WEEKS OF GESTATION
     Route: 065
  5. PHENERGAN [Suspect]
     Active Substance: PROMETHAZINE HYDROCHLORIDE
     Indication: VOMITING
     Route: 065
  6. ZOFRAN [Suspect]
     Active Substance: ONDANSETRON HYDROCHLORIDE
     Indication: VOMITING
     Route: 065
  7. CYMBALTA [Suspect]
     Active Substance: DULOXETINE HYDROCHLORIDE
     Indication: BIPOLAR DISORDER
     Route: 065
  8. MORPHINE [Suspect]
     Active Substance: MORPHINE
     Indication: MIGRAINE
     Route: 065
  9. KLONOPIN [Suspect]
     Active Substance: CLONAZEPAM
     Indication: BIPOLAR DISORDER
     Route: 065
  10. FENTANYL. [Suspect]
     Active Substance: FENTANYL
     Indication: MIGRAINE
     Route: 065
  11. REGLAN [Suspect]
     Active Substance: METOCLOPRAMIDE HYDROCHLORIDE
     Indication: VOMITING
     Route: 065
  12. CLONIDIN [Suspect]
     Active Substance: CLONIDINE
     Indication: PROPHYLAXIS
     Route: 065

REACTIONS (6)
  - Off label use [Unknown]
  - Maternal exposure during pregnancy [Unknown]
  - Premature rupture of membranes [Unknown]
  - Product use issue [Unknown]
  - Premature delivery [Unknown]
  - Vomiting [Unknown]

NARRATIVE: CASE EVENT DATE: 20090215
